FAERS Safety Report 5500966-2 (Version None)
Quarter: 2007Q4

REPORT INFORMATION
  Report Type: 
  Country: None (occurrence: None)
  Receive Date: 20071029
  Receipt Date: 20071019
  Transmission Date: 20080405
  Serious: Yes (Other)
  Sender: FDA-Public Use
  Company Number: PHBS2007GT17590

PATIENT
  Age: 53 Year
  Sex: Female

DRUGS (6)
  1. DIOVAN [Suspect]
     Indication: DRESSLER'S SYNDROME
     Dosage: 40 MG, UNK
     Route: 048
     Dates: start: 20030202
  2. GLISULIN XR [Concomitant]
     Dosage: 1.5 TAB, BID
  3. MEDOCOR [Concomitant]
     Dosage: 20 MG, QD
     Route: 048
  4. DIGOXIN [Concomitant]
     Dosage: 0.125 MG, QD
     Route: 048
  5. AMIODARONE [Concomitant]
     Dosage: 200 MG, QD
     Route: 048
  6. CARBAMAZEPINE [Concomitant]
     Dosage: 100 MG, QD
     Route: 048

REACTIONS (7)
  - BLOOD CHOLESTEROL INCREASED [None]
  - BLOOD GLUCOSE INCREASED [None]
  - BLOOD TRIGLYCERIDES INCREASED [None]
  - DIABETES MELLITUS [None]
  - DYSLIPIDAEMIA [None]
  - HIGH DENSITY LIPOPROTEIN INCREASED [None]
  - URINARY TRACT INFECTION [None]
